FAERS Safety Report 17569112 (Version 1)
Quarter: 2020Q1

REPORT INFORMATION
  Report Type: Report from Study
  Country: US (occurrence: US)
  Receive Date: 20200322
  Receipt Date: 20200322
  Transmission Date: 20200409
  Serious: Yes (Death, Other)
  Sender: FDA-Public Use
  Company Number: NVSC2020US073138

PATIENT
  Age: 15 Year
  Sex: Female

DRUGS (5)
  1. DOPAMINE [Concomitant]
     Active Substance: DOPAMINE HYDROCHLORIDE
     Indication: PRODUCT USED FOR UNKNOWN INDICATION
     Route: 065
  2. KYMRIAH [Suspect]
     Active Substance: TISAGENLECLEUCEL
     Indication: LYMPHATIC SYSTEM NEOPLASM
     Dosage: UNK
     Route: 065
     Dates: start: 2017
  3. KEPPRA [Concomitant]
     Active Substance: LEVETIRACETAM
     Indication: PRODUCT USED FOR UNKNOWN INDICATION
     Route: 065
  4. NOREPINEPHRINE. [Concomitant]
     Active Substance: NOREPINEPHRINE
     Indication: PRODUCT USED FOR UNKNOWN INDICATION
     Route: 065
  5. FLUDARABINE [Concomitant]
     Active Substance: FLUDARABINE PHOSPHATE
     Indication: PRODUCT USED FOR UNKNOWN INDICATION
     Route: 065

REACTIONS (3)
  - Cytokine release syndrome [Unknown]
  - Multiple organ dysfunction syndrome [Unknown]
  - Acute lymphocytic leukaemia [Fatal]
